FAERS Safety Report 10573250 (Version 1)
Quarter: 2014Q4

REPORT INFORMATION
  Report Type: Spontaneous
  Country: US (occurrence: None)
  Receive Date: 20141107
  Receipt Date: 20141107
  Transmission Date: 20150529
  Serious: Yes (Hospitalization)
  Sender: FDA-Public Use
  Company Number: None

PATIENT
  Age: 56 Year
  Sex: Female
  Weight: 73.48 kg

DRUGS (1)
  1. NEXIUM [Suspect]
     Active Substance: ESOMEPRAZOLE MAGNESIUM
     Indication: GASTROOESOPHAGEAL REFLUX DISEASE
     Dosage: 1 CAPSULE
     Route: 048
     Dates: start: 20091101, end: 20141106

REACTIONS (7)
  - Sepsis [None]
  - Fall [None]
  - Blood magnesium decreased [None]
  - Femur fracture [None]
  - Electrolyte imbalance [None]
  - Blood potassium decreased [None]
  - Gallbladder disorder [None]

NARRATIVE: CASE EVENT DATE: 20140923
